FAERS Safety Report 20071680 (Version 2)
Quarter: 2022Q1

REPORT INFORMATION
  Report Type: Spontaneous
  Country: JP (occurrence: JP)
  Receive Date: 20211116
  Receipt Date: 20220127
  Transmission Date: 20220423
  Serious: Yes (Hospitalization, Other)
  Sender: FDA-Public Use
  Company Number: JP-ASTELLAS-2021JP021780

PATIENT
  Sex: Male

DRUGS (4)
  1. XTANDI [Suspect]
     Active Substance: ENZALUTAMIDE
     Indication: Prostate cancer
     Dosage: 80 MG, ONCE DAILY,AFTER DINNER
     Route: 048
     Dates: start: 20210916
  2. XTANDI [Suspect]
     Active Substance: ENZALUTAMIDE
     Dosage: UNK UNK, UNKNOWN FREQ.
     Route: 048
  3. NUBEQA [Concomitant]
     Active Substance: DAROLUTAMIDE
     Indication: Product used for unknown indication
     Dosage: UNK UNK, UNKNOWN FREQ.
     Route: 065
  4. XOFIGO [Concomitant]
     Active Substance: RADIUM RA-223 DICHLORIDE
     Indication: Product used for unknown indication
     Dosage: UNK UNK, UNKNOWN FREQ.
     Route: 065

REACTIONS (2)
  - Bone pain [Unknown]
  - Malignant neoplasm progression [Unknown]
